FAERS Safety Report 14194148 (Version 4)
Quarter: 2018Q3

REPORT INFORMATION
  Report Type: Report from Study
  Country: US (occurrence: US)
  Receive Date: 20171116
  Receipt Date: 20180831
  Transmission Date: 20181010
  Serious: No
  Sender: FDA-Public Use
  Company Number: PHEH2017US037001

PATIENT
  Sex: Female

DRUGS (1)
  1. COSENTYX [Suspect]
     Active Substance: SECUKINUMAB
     Indication: PSORIASIS
     Dosage: 300 MG, QMO
     Route: 058

REACTIONS (10)
  - Insomnia [Unknown]
  - Joint swelling [Unknown]
  - Incorrect dose administered by device [Unknown]
  - Injection site bruising [Unknown]
  - Injection site pain [Unknown]
  - Musculoskeletal pain [Unknown]
  - Inflammation [Unknown]
  - Peripheral swelling [Unknown]
  - Device issue [Unknown]
  - Arthritis [Unknown]
